FAERS Safety Report 10250101 (Version 1)
Quarter: 2014Q2

REPORT INFORMATION
  Report Type: Spontaneous
  Country: US (occurrence: US)
  Receive Date: 20140620
  Receipt Date: 20140620
  Transmission Date: 20141212
  Serious: Yes (Other)
  Sender: FDA-Public Use
  Company Number: US-BRISTOL-MYERS SQUIBB COMPANY-20666525

PATIENT
  Age: 82 Year
  Sex: Male
  Weight: 90.7 kg

DRUGS (1)
  1. ELIQUIS [Suspect]
     Dosage: REDUCED TO 2.5MG, TWICE DAILY

REACTIONS (2)
  - Thrombosis [Unknown]
  - Blood creatinine abnormal [Unknown]
